FAERS Safety Report 9122734 (Version 1)
Quarter: 2013Q1

REPORT INFORMATION
  Report Type: Spontaneous
  Country: US (occurrence: None)
  Receive Date: 20130225
  Receipt Date: 20130225
  Transmission Date: 20140127
  Serious: Yes (Life-Threatening, Hospitalization)
  Sender: FDA-Public Use
  Company Number: None

PATIENT
  Age: 78 Year
  Sex: Male
  Weight: 57.5 kg

DRUGS (10)
  1. XARELTO [Suspect]
     Indication: KNEE OPERATION
     Route: 048
     Dates: start: 20121130, end: 20121217
  2. ANCEF [Concomitant]
  3. PREDNISONE [Concomitant]
  4. AMLODIPINE [Concomitant]
  5. LOSARTAN [Concomitant]
  6. MELATONIN [Concomitant]
  7. OMEPRAZOLE [Concomitant]
  8. ONDANSETRON [Concomitant]
  9. PERCOCET [Concomitant]
  10. TAMSULOSIN [Concomitant]

REACTIONS (4)
  - Haematuria [None]
  - Iatrogenic injury [None]
  - Haemorrhagic anaemia [None]
  - Ecchymosis [None]
